FAERS Safety Report 14673659 (Version 1)
Quarter: 2018Q1

REPORT INFORMATION
  Report Type: Spontaneous
  Country: FR (occurrence: FR)
  Receive Date: 20180323
  Receipt Date: 20180323
  Transmission Date: 20180509
  Serious: Yes (Other)
  Sender: FDA-Public Use
  Company Number: FR-TEVA-2018-FR-869613

PATIENT
  Age: 36 Year
  Sex: Female

DRUGS (2)
  1. FUCIDINE [Concomitant]
     Active Substance: FUSIDIC ACID
     Route: 061
  2. AMOXICILLINE [Suspect]
     Active Substance: AMOXICILLIN
     Indication: ARTHROPOD BITE
     Route: 048
     Dates: start: 20160501

REACTIONS (5)
  - Pruritus [Recovered/Resolved]
  - Vomiting [Recovered/Resolved]
  - Urticaria [Recovered/Resolved]
  - Malaise [Recovered/Resolved]
  - Asthenia [Recovered/Resolved]

NARRATIVE: CASE EVENT DATE: 20160501
